FAERS Safety Report 5148776-2 (Version None)
Quarter: 2006Q4

REPORT INFORMATION
  Report Type: 
  Country: None (occurrence: None)
  Receive Date: 20061107
  Receipt Date: 20061023
  Transmission Date: 20070319
  Serious: Yes (Other)
  Sender: FDA-Public Use
  Company Number: 06-001218

PATIENT
  Age: 27 Year
  Sex: Female
  Weight: 54.4 kg

DRUGS (1)
  1. DORYX [Suspect]
     Indication: ACNE
     Dosage: 75 MG, QD, ORAL
     Route: 048
     Dates: start: 20061021

REACTIONS (1)
  - CONVULSION [None]
